FAERS Safety Report 10022939 (Version 1)
Quarter: 2014Q1

REPORT INFORMATION
  Report Type: Spontaneous
  Country: US (occurrence: US)
  Receive Date: 20140319
  Receipt Date: 20140319
  Transmission Date: 20141002
  Serious: Yes (Hospitalization, Other)
  Sender: FDA-Public Use
  Company Number: US-BAXTER-2014BAX012416

PATIENT
  Age: 53 Year
  Sex: Female

DRUGS (4)
  1. OSMITROL INJECTION (MANNITOL INJECTION, USP) [Suspect]
     Indication: OEDEMA
     Route: 065
  2. OSMITROL INJECTION (MANNITOL INJECTION, USP) [Suspect]
     Indication: PLATELET DYSFUNCTION
  3. DESMOPRESSIN [Suspect]
     Indication: OEDEMA
     Route: 065
  4. DESMOPRESSIN [Suspect]
     Indication: PLATELET DYSFUNCTION

REACTIONS (1)
  - Cerebral infarction [Not Recovered/Not Resolved]
